FAERS Safety Report 5141327-8 (Version None)
Quarter: 2006Q4

REPORT INFORMATION
  Report Type: 
  Country: None (occurrence: None)
  Receive Date: 20061101
  Receipt Date: 20060912
  Transmission Date: 20070319
  Serious: Yes (Hospitalization)
  Sender: FDA-Public Use
  Company Number: US-BRISTOL-MYERS SQUIBB COMPANY-13505870

PATIENT
  Age: 46 Year
  Sex: Male

DRUGS (7)
  1. CISPLATIN [Suspect]
     Indication: GASTRIC CANCER
     Route: 041
     Dates: start: 20060803, end: 20060803
  2. FLUOROURACIL [Concomitant]
     Indication: GASTRIC CANCER
     Route: 041
     Dates: start: 20060803, end: 20060808
  3. COMPAZINE [Concomitant]
     Indication: ANTIEMETIC SUPPORTIVE CARE
     Route: 048
  4. AUGMENTIN '500' [Concomitant]
     Indication: ANTIBIOTIC PROPHYLAXIS
     Route: 048
     Dates: start: 20060810, end: 20060820
  5. FLUCONAZOLE [Concomitant]
     Indication: FUNGAL OESOPHAGITIS
     Route: 048
     Dates: start: 20060810, end: 20060907
  6. NEXIUM [Concomitant]
  7. FLAGYL [Concomitant]
     Indication: FUNGAL OESOPHAGITIS
     Route: 048
     Dates: start: 20060810, end: 20060820

REACTIONS (1)
  - DEHYDRATION [None]
